FAERS Safety Report 5897910-5 (Version None)
Quarter: 2008Q3

REPORT INFORMATION
  Report Type: 
  Country: None (occurrence: None)
  Receive Date: 20080924
  Receipt Date: 20080924
  Transmission Date: 20090109
  Serious: Yes (Hospitalization)
  Sender: FDA-Public Use
  Company Number: None

PATIENT
  Age: 65 Year
  Sex: Male
  Weight: 69.4003 kg

DRUGS (17)
  1. BEVACIZUMAB 5 MG/KG [Suspect]
     Indication: HEAD AND NECK CANCER
     Dosage: 337 MG QOWK X 4
     Dates: start: 20080804
  2. BEVACIZUMAB 5 MG/KG [Suspect]
     Indication: HEAD AND NECK CANCER
     Dosage: 337 MG QOWK X 4
     Dates: start: 20080808
  3. BEVACIZUMAB 5 MG/KG [Suspect]
     Indication: HEAD AND NECK CANCER
     Dosage: 337 MG QOWK X 4
     Dates: start: 20080902
  4. BEVACIZUMAB 5 MG/KG [Suspect]
     Indication: HEAD AND NECK CANCER
     Dosage: 337 MG QOWK X 4
     Dates: start: 20080915
  5. TAXOTERE [Suspect]
     Indication: HEAD AND NECK CANCER
     Dosage: 29 MG WEEKLY X 8
     Dates: start: 20080804
  6. TAXOTERE [Suspect]
     Indication: HEAD AND NECK CANCER
     Dosage: 29 MG WEEKLY X 8
     Dates: start: 20080811
  7. TAXOTERE [Suspect]
     Indication: HEAD AND NECK CANCER
     Dosage: 29 MG WEEKLY X 8
     Dates: start: 20080818
  8. TAXOTERE [Suspect]
     Indication: HEAD AND NECK CANCER
     Dosage: 29 MG WEEKLY X 8
     Dates: start: 20080825
  9. TAXOTERE [Suspect]
     Indication: HEAD AND NECK CANCER
     Dosage: 29 MG WEEKLY X 8
     Dates: start: 20080902
  10. TAXOTERE [Suspect]
     Indication: HEAD AND NECK CANCER
     Dosage: 29 MG WEEKLY X 8
     Dates: start: 20080909
  11. TAXOTERE [Suspect]
     Indication: HEAD AND NECK CANCER
     Dosage: 29 MG WEEKLY X 8
     Dates: start: 20080915
  12. MORPHINE SULFATE [Concomitant]
  13. COMPAZINE [Concomitant]
  14. ZOFRAN [Concomitant]
  15. H ALTERNATIVE WITH COMPAZINE [Concomitant]
  16. NEURONTIN [Concomitant]
  17. FENTANYL TRANSDERMAL SYSTEM [Concomitant]

REACTIONS (11)
  - ASTHENIA [None]
  - BLOOD CULTURE POSITIVE [None]
  - CONSTIPATION [None]
  - DEHYDRATION [None]
  - FAECAL INCONTINENCE [None]
  - GENERAL PHYSICAL HEALTH DETERIORATION [None]
  - HYPOTENSION [None]
  - LETHARGY [None]
  - PNEUMONIA ASPIRATION [None]
  - RENAL FAILURE [None]
  - URINARY INCONTINENCE [None]
